FAERS Safety Report 26147247 (Version 1)
Quarter: 2025Q4

REPORT INFORMATION
  Report Type: Spontaneous
  Country: US (occurrence: US)
  Receive Date: 20251211
  Receipt Date: 20251211
  Transmission Date: 20260117
  Serious: Yes (Hospitalization)
  Sender: MERCK SHARP & DOHME LLC
  Company Number: US-009507513-2357529

PATIENT
  Age: 82 Year
  Sex: Male

DRUGS (1)
  1. PEMBROLIZUMAB [Suspect]
     Active Substance: PEMBROLIZUMAB
     Indication: Malignant melanoma

REACTIONS (7)
  - Immune-mediated lung disease [Unknown]
  - Immune-mediated nephritis [Unknown]
  - Immune-mediated encephalitis [Unknown]
  - Immune-mediated arthritis [Unknown]
  - Immune-mediated myocarditis [Unknown]
  - Ill-defined disorder [Unknown]
  - Immune-mediated dermatitis [Unknown]
